FAERS Safety Report 5877738-2 (Version None)
Quarter: 2008Q3

REPORT INFORMATION
  Report Type: 
  Country: None (occurrence: None)
  Receive Date: 20080911
  Receipt Date: 20080829
  Transmission Date: 20090109
  Serious: Yes (Hospitalization)
  Sender: FDA-Public Use
  Company Number: FR-AMGEN-US306360

PATIENT
  Age: 45 Year
  Sex: Male

DRUGS (1)
  1. ENBREL [Suspect]
     Indication: PSORIASIS
     Dosage: UNKNOWN
     Route: 058
     Dates: start: 20050201, end: 20061201

REACTIONS (4)
  - EMPHYSEMA [None]
  - INTERSTITIAL LUNG DISEASE [None]
  - PSORIASIS [None]
  - RESPIRATORY ACIDOSIS [None]
